FAERS Safety Report 9829072 (Version 2)
Quarter: 2014Q1

REPORT INFORMATION
  Report Type: Spontaneous
  Country: BE (occurrence: BE)
  Receive Date: 20140119
  Receipt Date: 20140305
  Transmission Date: 20141002
  Serious: Yes (Death)
  Sender: FDA-Public Use
  Company Number: US-ASTRAZENECA-2014SE02980

PATIENT
  Age: 111 Day
  Sex: Female
  Weight: 2.5 kg

DRUGS (1)
  1. SYNAGIS [Suspect]
     Indication: ANTIVIRAL PROPHYLAXIS
     Route: 030
     Dates: start: 20140103, end: 20140103

REACTIONS (4)
  - Cardio-respiratory arrest [Fatal]
  - Pulse absent [Fatal]
  - Necrotising colitis [Fatal]
  - Thrombosis [Fatal]
